FAERS Safety Report 6361810-7 (Version None)
Quarter: 2009Q3

REPORT INFORMATION
  Report Type: 
  Country: None (occurrence: None)
  Receive Date: 20090821
  Receipt Date: 20090630
  Transmission Date: 20100115
  Serious: No
  Sender: FDA-Public Use
  Company Number: 8048459

PATIENT
  Sex: Female

DRUGS (2)
  1. CIMZIA [Suspect]
     Dosage: 400 MG SC
     Route: 058
  2. NAPROSYN [Concomitant]

REACTIONS (4)
  - BONE PAIN [None]
  - CHEST PAIN [None]
  - CROHN'S DISEASE [None]
  - INJECTION SITE PAIN [None]
